FAERS Safety Report 8348280-4 (Version None)
Quarter: 2012Q2

REPORT INFORMATION
  Report Type: 
  Country: None (occurrence: None)
  Receive Date: 20120509
  Receipt Date: 20120426
  Transmission Date: 20120825
  Serious: Yes (Other)
  Sender: FDA-Public Use
  Company Number: JP-MYLANLABS-2012S1009357

PATIENT
  Age: 57 Year
  Sex: Male

DRUGS (4)
  1. GEMCITABINE [Suspect]
     Indication: PANCREATIC CARCINOMA
     Dosage: MG/BODY
     Route: 041
  2. GIMERACIL W/OTERACIL POTASSIUM/TEGAFUR [Concomitant]
     Indication: PANCREATIC CARCINOMA
  3. CARBOPLATIN [Suspect]
     Indication: PANCREATIC CARCINOMA
     Dosage: MG/BODY
     Route: 041
  4. DOCETAXEL [Suspect]
     Indication: PANCREATIC CARCINOMA
     Dosage: MG/BODY
     Route: 041

REACTIONS (1)
  - PANCREATITIS [None]
